FAERS Safety Report 9531952 (Version 2)
Quarter: 2013Q4

REPORT INFORMATION
  Report Type: Spontaneous
  Country: US (occurrence: US)
  Receive Date: 20130918
  Receipt Date: 20131022
  Transmission Date: 20140711
  Serious: No
  Sender: FDA-Public Use
  Company Number: US-PFIZER INC-2013264474

PATIENT
  Age: 37 Year
  Sex: Female
  Weight: 63.49 kg

DRUGS (2)
  1. ZITHROMAX [Suspect]
     Indication: BRONCHITIS
     Dosage: 500MG ON DAY 1 FOLLOWED BY 250MG FROM DAY 2 TO DAY 5, 1X/DAY
     Route: 048
     Dates: start: 20130910, end: 20130914
  2. IBUPROFEN [Concomitant]
     Indication: PYREXIA
     Dosage: 200 MG, AS NEEDED

REACTIONS (1)
  - Salivary hypersecretion [Recovered/Resolved]
